FAERS Safety Report 7112117-1 (Version None)
Quarter: 2010Q4

REPORT INFORMATION
  Report Type: 
  Country: None (occurrence: None)
  Receive Date: 20101119
  Receipt Date: 20091113
  Transmission Date: 20110411
  Serious: No
  Sender: FDA-Public Use
  Company Number: A0817005A

PATIENT
  Age: 57 Year
  Sex: Male

DRUGS (5)
  1. AVODART [Suspect]
     Indication: BENIGN PROSTATIC HYPERPLASIA
     Dosage: .5MG PER DAY
     Route: 048
  2. HYDROCHLOROTHIAZIDE [Concomitant]
  3. LISINOPRIL [Concomitant]
  4. CYMBALTA [Concomitant]
  5. STRATTERA [Concomitant]

REACTIONS (3)
  - BLOOD PROLACTIN INCREASED [None]
  - BREAST MASS [None]
  - GYNAECOMASTIA [None]
